FAERS Safety Report 5477551-4 (Version None)
Quarter: 2007Q4

REPORT INFORMATION
  Report Type: 
  Country: None (occurrence: None)
  Receive Date: 20071002
  Receipt Date: 20070917
  Transmission Date: 20080405
  Serious: Yes (Other)
  Sender: FDA-Public Use
  Company Number: 2007US-10103

PATIENT
  Age: 21 Year
  Sex: Male

DRUGS (2)
  1. ACETAMINOPHEN/PSEUDOEPHEDRINE HCI/DEXTROMETHORPHANHBR(ACETAMINOPHEN/PA [Suspect]
     Indication: DRUG USE FOR UNKNOWN INDICATION
     Dosage: 750 MG
  2. N-BENZYLPIPERAZINE [Suspect]
     Indication: DRUG USE FOR UNKNOWN INDICATION
     Dosage: 5000 MG

REACTIONS (14)
  - AGITATION [None]
  - ANXIETY [None]
  - CONFUSIONAL STATE [None]
  - DEPRESSION [None]
  - HOT FLUSH [None]
  - HYPERACUSIS [None]
  - HYPERHIDROSIS [None]
  - HYPERTENSION [None]
  - INTENTIONAL OVERDOSE [None]
  - OVERDOSE [None]
  - PHOTOPHOBIA [None]
  - PSYCHOTIC DISORDER [None]
  - TACHYCARDIA [None]
  - TRISMUS [None]
